FAERS Safety Report 7513157-0 (Version None)
Quarter: 2011Q2

REPORT INFORMATION
  Report Type: 
  Country: None (occurrence: None)
  Receive Date: 20110531
  Receipt Date: 20110518
  Transmission Date: 20111010
  Serious: Yes (Other)
  Sender: FDA-Public Use
  Company Number: JP-MERCK-1104USA00756

PATIENT
  Age: 84 Year
  Sex: Female

DRUGS (14)
  1. NORVASC [Concomitant]
     Route: 065
  2. FUROSEMIDE [Concomitant]
     Route: 065
  3. LEVOFLOXACIN [Suspect]
     Indication: C-REACTIVE PROTEIN INCREASED
     Route: 048
     Dates: start: 20110304, end: 20110311
  4. RIZE [Concomitant]
     Route: 065
     Dates: start: 20110308
  5. DIOVAN [Concomitant]
     Indication: HYPERTENSION
     Route: 065
     Dates: end: 20110314
  6. METOPROLOL TARTRATE [Concomitant]
     Route: 065
  7. ASPIRIN [Concomitant]
     Route: 065
  8. ALTAT [Concomitant]
     Route: 065
  9. ALDACTONE [Concomitant]
     Route: 065
  10. SIGMART [Concomitant]
     Route: 065
  11. BIOFERMIN [Concomitant]
     Route: 065
     Dates: start: 20110303
  12. JANUVIA [Suspect]
     Indication: TYPE 2 DIABETES MELLITUS
     Route: 048
     Dates: start: 20110308, end: 20110311
  13. LEVOFLOXACIN [Suspect]
     Indication: BRONCHITIS
     Route: 048
     Dates: start: 20110304, end: 20110311
  14. NITOROL-R [Concomitant]
     Route: 065

REACTIONS (1)
  - RENAL FAILURE CHRONIC [None]
